FAERS Safety Report 5775774-8 (Version None)
Quarter: 2008Q2

REPORT INFORMATION
  Report Type: 
  Country: None (occurrence: None)
  Receive Date: 20080617
  Receipt Date: 20080528
  Transmission Date: 20081010
  Serious: No
  Sender: FDA-Public Use
  Company Number: US-BOEHRINGER INGELHEIM GMBH, GERMANY-2008-BP-05877BP

PATIENT
  Sex: Male

DRUGS (8)
  1. CATAPRES-TTS-1 [Suspect]
     Indication: HYPERTENSION
     Dates: start: 20070401
  2. ATENOLOL [Concomitant]
     Indication: HYPERTENSION
     Route: 048
  3. SULAR [Concomitant]
     Indication: HYPERTENSION
     Route: 048
  4. POTASSIUM CHLORIDE [Concomitant]
     Indication: HYPERTENSION
     Route: 048
  5. ASPIRIN [Concomitant]
     Indication: PAIN
     Route: 048
  6. PLAVIX [Concomitant]
     Route: 048
  7. NOVOLIN INSULIN [Concomitant]
     Indication: DIABETES MELLITUS
     Route: 058
  8. CARBIDOPA AND LEVODOPA [Concomitant]
     Route: 048

REACTIONS (2)
  - DIZZINESS [None]
  - DRUG INEFFECTIVE [None]
